FAERS Safety Report 12867293 (Version 1)
Quarter: 2016Q4

REPORT INFORMATION
  Report Type: Spontaneous
  Country: US (occurrence: US)
  Receive Date: 20161020
  Receipt Date: 20161020
  Transmission Date: 20170207
  Serious: No
  Sender: FDA-Public Use
  Company Number: US-ELI_LILLY_AND_COMPANY-US201610005891

PATIENT
  Age: 35 Year
  Sex: Female

DRUGS (3)
  1. HUMALOG [Suspect]
     Active Substance: INSULIN LISPRO
     Indication: TYPE 1 DIABETES MELLITUS
     Dosage: 8-10 U, 2-3 TIMES A DAY
     Route: 065
     Dates: start: 2015
  2. LISINOPRIL. [Concomitant]
     Active Substance: LISINOPRIL
  3. LEVEMIR [Concomitant]
     Active Substance: INSULIN DETEMIR

REACTIONS (2)
  - Incorrect dose administered [Unknown]
  - Blood glucose decreased [Unknown]

NARRATIVE: CASE EVENT DATE: 20161015
